FAERS Safety Report 9959457 (Version 1)
Quarter: 2014Q1

REPORT INFORMATION
  Report Type: Spontaneous
  Country: US (occurrence: None)
  Receive Date: 20140228
  Receipt Date: 20140228
  Transmission Date: 20141002
  Serious: No
  Sender: FDA-Public Use
  Company Number: None

PATIENT
  Age: 60 Year
  Sex: Female

DRUGS (1)
  1. ACTHAR GEL HP80UNIT/ML 5ML VL QUESTCOR PHARM. [Suspect]
     Indication: GLOMERULONEPHRITIS MEMBRANOUS
     Dosage: SUBCUTANEOUSLY TWICE A WEEK FOR 6 CHRONIC MEMBRANOUS MONTH
     Route: 058
     Dates: start: 20130730, end: 20140213

REACTIONS (3)
  - Speech disorder [None]
  - Arthralgia [None]
  - Pain in extremity [None]
